FAERS Safety Report 4312301-6 (Version None)
Quarter: 2004Q1

REPORT INFORMATION
  Report Type: 
  Country: None (occurrence: None)
  Receive Date: 20040305
  Receipt Date: 20040203
  Transmission Date: 20041129
  Serious: Yes (Death, Hospitalization)
  Sender: FDA-Public Use
  Company Number: JP-GLAXOSMITHKLINE-B0322222A

PATIENT
  Age: 70 Year
  Sex: Female
  Weight: 55 kg

DRUGS (7)
  1. ZANTAC [Suspect]
     Dosage: 150MG TWICE PER DAY
     Route: 048
     Dates: start: 20030820, end: 20031111
  2. PREDNISOLONE [Concomitant]
     Indication: DRUG ERUPTION
     Dosage: 15MG PER DAY
     Route: 048
     Dates: start: 20030312, end: 20030619
  3. REBAMIPIDE [Concomitant]
     Route: 048
     Dates: start: 20030820, end: 20031111
  4. BAKTAR [Concomitant]
     Route: 048
     Dates: start: 20030425, end: 20031111
  5. NEORAL [Concomitant]
     Route: 048
     Dates: start: 20030425, end: 20031021
  6. METHYLPREDNISOLONE SODIUM SUCCINATE [Concomitant]
     Dosage: 500MG PER DAY
     Route: 042
     Dates: start: 20030422, end: 20030424
  7. SULFAMETHOXAZOLE + TRIMETHOPRIM [Concomitant]
     Route: 045
     Dates: start: 20030425, end: 20031111

REACTIONS (4)
  - DRUG ERUPTION [None]
  - PANCREATIC HAEMORRHAGE [None]
  - PANCREATIC NECROSIS [None]
  - PANCREATITIS ACUTE [None]
